FAERS Safety Report 13424648 (Version 5)
Quarter: 2017Q2

REPORT INFORMATION
  Report Type: Spontaneous
  Country: JP (occurrence: JP)
  Receive Date: 20170410
  Receipt Date: 20170530
  Transmission Date: 20170830
  Serious: Yes (Death)
  Sender: FDA-Public Use
  Company Number: PHJP2017JP011860

PATIENT
  Age: 75 Year
  Sex: Male
  Weight: 62 kg

DRUGS (10)
  1. ELIQUIS [Concomitant]
     Active Substance: APIXABAN
     Indication: CARDIAC FAILURE
     Dosage: 2.5 MG, BID
     Route: 065
     Dates: start: 20160430, end: 20170328
  2. BAYASPIRIN [Concomitant]
     Active Substance: ASPIRIN
     Indication: CARDIAC FAILURE
     Dosage: 100 MG, UNK
     Route: 065
     Dates: start: 20160430, end: 20170328
  3. EXJADE [Suspect]
     Active Substance: DEFERASIROX
     Indication: IRON OVERLOAD
     Dosage: 10 MG/KG, (500 MG)
     Route: 048
     Dates: start: 20170215, end: 20170321
  4. SAMSCA [Concomitant]
     Active Substance: TOLVAPTAN
     Indication: CARDIAC FAILURE
     Dosage: 15 MG, UNK
     Route: 065
     Dates: start: 20160430, end: 20170328
  5. FUROSEMIDE. [Concomitant]
     Active Substance: FUROSEMIDE
     Indication: CARDIAC FAILURE
     Dosage: 20 MG, UNK
     Route: 065
     Dates: start: 20160430, end: 20170328
  6. EXJADE [Suspect]
     Active Substance: DEFERASIROX
     Dosage: 15 MG/KG, UNK
     Route: 065
     Dates: start: 20170322, end: 20170328
  7. AMIODARONE HYDROCHLORIDE. [Concomitant]
     Active Substance: AMIODARONE HYDROCHLORIDE
     Indication: CARDIAC FAILURE
     Dosage: 150 MG, UNK
     Route: 065
     Dates: start: 20160430, end: 20170328
  8. AZOSEMIDE [Concomitant]
     Active Substance: AZOSEMIDE
     Indication: CARDIAC FAILURE
     Dosage: 30 MG, UNK
     Route: 065
     Dates: start: 20160430, end: 20170328
  9. AMBROXOL HYDROCHLORIDE [Concomitant]
     Active Substance: AMBROXOL HYDROCHLORIDE
     Indication: CARDIAC FAILURE
     Dosage: 15 MG, TID
     Route: 065
     Dates: start: 20160430, end: 20170328
  10. CARBOCISTEINE [Concomitant]
     Active Substance: CARBOCYSTEINE
     Indication: CARDIAC FAILURE
     Dosage: 500 MG, TID
     Route: 065
     Dates: start: 20160430, end: 20170328

REACTIONS (4)
  - Neutrophil count decreased [Fatal]
  - Shock [Fatal]
  - Sepsis [Fatal]
  - Malaise [Unknown]

NARRATIVE: CASE EVENT DATE: 20170328
